FAERS Safety Report 19847610 (Version 1)
Quarter: 2021Q3

REPORT INFORMATION
  Report Type: Spontaneous
  Country: US (occurrence: US)
  Receive Date: 20210917
  Receipt Date: 20210917
  Transmission Date: 20211014
  Serious: No
  Sender: FDA-Public Use
  Company Number: NVSC2021US210875

PATIENT
  Sex: Female

DRUGS (2)
  1. BUPROPION HCL SANDOZ [Suspect]
     Active Substance: BUPROPION HYDROCHLORIDE
     Indication: PRODUCT USED FOR UNKNOWN INDICATION
     Dosage: 150 MG, BID
     Route: 065
  2. BUPROPION HCL SANDOZ [Suspect]
     Active Substance: BUPROPION HYDROCHLORIDE
     Dosage: 150 MG, BID (FOR 9 MONTHS)
     Route: 065
     Dates: start: 20210723

REACTIONS (4)
  - Depressed mood [Unknown]
  - Drug ineffective [Unknown]
  - Phobia [Unknown]
  - Feeling abnormal [Unknown]
